FAERS Safety Report 5782410-3 (Version None)
Quarter: 2008Q2

REPORT INFORMATION
  Report Type: 
  Country: None (occurrence: None)
  Receive Date: 20080623
  Receipt Date: 20080606
  Transmission Date: 20081010
  Serious: Yes (Hospitalization, Other)
  Sender: FDA-Public Use
  Company Number: PHHY2008JP03175

PATIENT
  Sex: Male

DRUGS (6)
  1. ZOMETA [Suspect]
     Indication: METASTASES TO BONE
     Dosage: 4 MG, QMO
     Route: 042
     Dates: start: 20060501, end: 20071201
  2. PREDONINE [Suspect]
     Dosage: 60 MG, UNK
     Route: 048
     Dates: start: 20060701, end: 20070601
  3. DEXAMETHASONE TAB [Suspect]
     Dosage: UNK
     Dates: start: 20060401, end: 20060401
  4. ADRIACIN [Concomitant]
     Dosage: UNK
     Route: 042
     Dates: start: 20060401, end: 20060601
  5. ONCOVIN [Concomitant]
     Dosage: UNK
     Route: 042
     Dates: start: 20060401, end: 20060601
  6. MELPHALAN [Concomitant]
     Dosage: 10 MG, UNK
     Route: 042
     Dates: start: 20060701, end: 20070601

REACTIONS (9)
  - BONE DISORDER [None]
  - GINGIVAL SWELLING [None]
  - ORAL PAIN [None]
  - OSTEOMYELITIS [None]
  - OSTEONECROSIS [None]
  - PURULENT DISCHARGE [None]
  - TOOTH INFECTION [None]
  - WISDOM TEETH REMOVAL [None]
  - X-RAY ABNORMAL [None]
